FAERS Safety Report 9626874 (Version 3)
Quarter: 2013Q4

REPORT INFORMATION
  Report Type: Spontaneous
  Country: JP (occurrence: JP)
  Receive Date: 20131016
  Receipt Date: 20131202
  Transmission Date: 20140711
  Serious: Yes (Hospitalization, Other)
  Sender: FDA-Public Use
  Company Number: JP-BRISTOL-MYERS SQUIBB COMPANY-19500933

PATIENT
  Age: 37 Year
  Sex: Female
  Weight: 58 kg

DRUGS (12)
  1. ABILIFY TABS [Suspect]
     Indication: SUBSTANCE-INDUCED PSYCHOTIC DISORDER
     Route: 048
     Dates: start: 20130821, end: 20130927
  2. SOLU-MEDROL [Suspect]
     Indication: ACUTE RESPIRATORY DISTRESS SYNDROME
     Dosage: 7AG13-500MG.21-27AG:50MG.28AU-4SE:45MG.
     Route: 041
     Dates: start: 20130806, end: 20130806
  3. PREDONINE [Suspect]
     Indication: ACUTE RESPIRATORY DISTRESS SYNDROME
     Dosage: (5-9SE:50MG.10-12SE:45MG.13-19SE.20-23SE:35MG.24-27SE:30MG.28SE-25MG.20MG-ONG.
     Route: 048
     Dates: start: 20130808, end: 20130811
  4. SOLU-CORTEF [Suspect]
     Indication: ACUTE RESPIRATORY DISTRESS SYNDROME
     Dosage: 15AG13-200MG
     Route: 041
     Dates: start: 20130812, end: 20130814
  5. INSULIN [Concomitant]
  6. LIMAS [Concomitant]
     Dates: start: 20130826, end: 20130915
  7. SALAGEN [Concomitant]
     Dates: start: 20130829
  8. HIRNAMIN [Concomitant]
     Dates: start: 20130903, end: 20130924
  9. BAKTAR [Concomitant]
     Dates: start: 20130903
  10. FUNGIZONE [Concomitant]
     Dates: start: 20130906
  11. ALDACTONE [Concomitant]
     Dates: start: 20130910
  12. NEXIUM [Concomitant]
     Dates: start: 2013

REACTIONS (2)
  - Hyperglycaemia [Not Recovered/Not Resolved]
  - Pneumonia aspiration [Recovering/Resolving]
